FAERS Safety Report 14247757 (Version 4)
Quarter: 2018Q4

REPORT INFORMATION
  Report Type: Report from Study
  Country: JP (occurrence: JP)
  Receive Date: 20171204
  Receipt Date: 20181220
  Transmission Date: 20190204
  Serious: Yes (Death, Hospitalization)
  Sender: FDA-Public Use
  Company Number: JP-ACTELION-A-CH2017-163187

PATIENT
  Age: 78 Year
  Sex: Female

DRUGS (24)
  1. TAKEPRON [Concomitant]
     Active Substance: LANSOPRAZOLE
  2. CEFCAPENE PIVOXIL HYDROCHLORIDE [Concomitant]
     Active Substance: CEFCAPENE PIVOXIL HYDROCHLORIDE
  3. JUVELA N [Concomitant]
     Active Substance: TOCOPHERYL NICOTINATE, D-.ALPHA.
  4. TOCOPHERYL NICOTINATE [Concomitant]
     Active Substance: TOCOPHERYL NICOTINATE, D-.ALPHA.
  5. SULBACILLIN [Concomitant]
     Active Substance: AMPICILLIN SODIUM\SULBACTAM SODIUM
  6. PREDONINE [Concomitant]
     Active Substance: PREDNISOLONE
  7. DOGMATYL [Concomitant]
     Active Substance: SULPIRIDE
  8. PLETAAL [Concomitant]
     Active Substance: CILOSTAZOL
  9. QUETIAPINE. [Concomitant]
     Active Substance: QUETIAPINE
  10. OXYGEN. [Concomitant]
     Active Substance: OXYGEN
  11. SELARA [Concomitant]
     Active Substance: EPLERENONE
  12. FUROSEMIDE. [Concomitant]
     Active Substance: FUROSEMIDE
  13. SOLDACTONE [Concomitant]
     Active Substance: CANRENOATE POTASSIUM
  14. FOSAMAC [Concomitant]
     Active Substance: ALENDRONATE SODIUM
  15. ROZEREM [Concomitant]
     Active Substance: RAMELTEON
  16. BONALON [Concomitant]
     Active Substance: ALENDRONATE SODIUM
  17. ARTIST [Concomitant]
     Active Substance: CARVEDILOL
  18. REVATIO [Concomitant]
     Active Substance: SILDENAFIL CITRATE
  19. LANSOPRAZOL [Concomitant]
     Active Substance: LANSOPRAZOLE
  20. OPSUMIT [Suspect]
     Active Substance: MACITENTAN
     Indication: PULMONARY ARTERIAL HYPERTENSION
     Dosage: 10 MG, OD
     Route: 048
     Dates: start: 20160818, end: 201712
  21. VITAMINS NOS [Concomitant]
     Active Substance: VITAMINS
  22. PREDNISOLON [Concomitant]
     Active Substance: PREDNISOLONE
  23. MOSAPRIDE CITRATE [Concomitant]
     Active Substance: MOSAPRIDE CITRATE
  24. CALONAL [Concomitant]
     Active Substance: ACETAMINOPHEN

REACTIONS (35)
  - Cardiac failure acute [Fatal]
  - Diarrhoea [Recovered/Resolved]
  - Hypothyroidism [Not Recovered/Not Resolved]
  - Nutritional condition abnormal [Not Recovered/Not Resolved]
  - Renal impairment [Not Recovered/Not Resolved]
  - Ascites [Not Recovered/Not Resolved]
  - Cardiomegaly [Not Recovered/Not Resolved]
  - Hypokalaemia [Not Recovered/Not Resolved]
  - Blood disorder [Fatal]
  - Pericardial effusion [Not Recovered/Not Resolved]
  - Decreased appetite [Not Recovered/Not Resolved]
  - Pneumonia aspiration [Not Recovered/Not Resolved]
  - Atelectasis [Not Recovered/Not Resolved]
  - Pleural effusion [Not Recovered/Not Resolved]
  - Oedema peripheral [Not Recovered/Not Resolved]
  - Dyspnoea exertional [Not Recovered/Not Resolved]
  - Left ventricular hypertrophy [Not Recovered/Not Resolved]
  - Non-cirrhotic portal hypertension [Unknown]
  - Abdominal cavity drainage [Unknown]
  - Pyrexia [Not Recovered/Not Resolved]
  - Faeces soft [Recovered/Resolved]
  - Nasopharyngitis [Recovered/Resolved]
  - Dermal cyst [Not Recovered/Not Resolved]
  - Blast cells present [Fatal]
  - Moaning [Fatal]
  - Bradycardia [Fatal]
  - Pancytopenia [Fatal]
  - Abdominal distension [Not Recovered/Not Resolved]
  - Pulmonary embolism [Not Recovered/Not Resolved]
  - Asthenia [Not Recovered/Not Resolved]
  - Hypophagia [Fatal]
  - Oedema [Not Recovered/Not Resolved]
  - Hypoxia [Not Recovered/Not Resolved]
  - Blood lactate dehydrogenase increased [Fatal]
  - Gastrointestinal disorder [Not Recovered/Not Resolved]

NARRATIVE: CASE EVENT DATE: 20170126
